FAERS Safety Report 19835176 (Version 2)
Quarter: 2021Q4

REPORT INFORMATION
  Report Type: Report from Study
  Country: None (occurrence: US)
  Receive Date: 20210915
  Receipt Date: 20211018
  Transmission Date: 20220303
  Serious: Yes (Death, Other)
  Sender: FDA-Public Use
  Company Number: US-ABBVIE-21K-163-4079790-00

PATIENT
  Age: 71 Year
  Sex: Male

DRUGS (3)
  1. CREON [Suspect]
     Active Substance: PANCRELIPASE AMYLASE\PANCRELIPASE LIPASE\PANCRELIPASE PROTEASE
     Indication: Pancreatitis acute
     Dosage: TWO CAPSULES WITH MEALS
     Route: 048
     Dates: start: 2018, end: 20210903
  2. OXYCONTIN [Concomitant]
     Active Substance: OXYCODONE HYDROCHLORIDE
     Indication: Abdominal pain upper
  3. TYLENOL [Concomitant]
     Active Substance: ACETAMINOPHEN
     Indication: Pain

REACTIONS (6)
  - Cardiac disorder [Fatal]
  - Lung neoplasm malignant [Fatal]
  - Hip fracture [Not Recovered/Not Resolved]
  - Cancer pain [Unknown]
  - Arthralgia [Not Recovered/Not Resolved]
  - Impaired healing [Unknown]

NARRATIVE: CASE EVENT DATE: 20190101
